FAERS Safety Report 7186867-5 (Version None)
Quarter: 2010Q4

REPORT INFORMATION
  Report Type: 
  Country: None (occurrence: None)
  Receive Date: 20101222
  Receipt Date: 20101216
  Transmission Date: 20110411
  Serious: Yes (Life-Threatening)
  Sender: FDA-Public Use
  Company Number: B0690418A

PATIENT
  Sex: Female

DRUGS (2)
  1. AMOXICILLIN AND CLAVULANATE POTASSIUM [Suspect]
     Dosage: 1TAB PER DAY
     Route: 048
     Dates: start: 20101025, end: 20101025
  2. LAMICTAL [Concomitant]

REACTIONS (8)
  - DYSPNOEA [None]
  - EYELID OEDEMA [None]
  - LIP OEDEMA [None]
  - MACULE [None]
  - PAPULE [None]
  - PRURITUS [None]
  - SICCA SYNDROME [None]
  - URTICARIA [None]
